FAERS Safety Report 6997092-2 (Version None)
Quarter: 2010Q3

REPORT INFORMATION
  Report Type: 
  Country: None (occurrence: None)
  Receive Date: 20100918
  Receipt Date: 20091112
  Transmission Date: 20110219
  Serious: No
  Sender: FDA-Public Use
  Company Number: US-WYE-H10882809

PATIENT
  Sex: Male
  Weight: 84.44 kg

DRUGS (11)
  1. TORISEL [Suspect]
     Indication: RENAL CELL CARCINOMA
     Dosage: 25 MG EVERY
     Route: 042
     Dates: start: 20090818, end: 20090818
  2. TORISEL [Suspect]
     Dosage: 25 MG EVERY
     Route: 042
     Dates: start: 20090825, end: 20090825
  3. LISINOPRIL [Concomitant]
  4. AMILORIDE HYDROCHLORIDE [Concomitant]
  5. OSCAL [Concomitant]
  6. HYDROCODONE BITARTRATE + ACETAMINOPHEN [Concomitant]
  7. TEMAZEPAM [Concomitant]
  8. ACETYLSALICYLIC ACID [Concomitant]
  9. CENTRUM SILVER [Concomitant]
  10. PRILOSEC [Concomitant]
  11. NAPROXEN [Concomitant]

REACTIONS (3)
  - ERYTHEMA [None]
  - OEDEMA PERIPHERAL [None]
  - RASH PAPULAR [None]
